FAERS Safety Report 8502752-8 (Version None)
Quarter: 2012Q3

REPORT INFORMATION
  Report Type: 
  Country: None (occurrence: None)
  Receive Date: 20120711
  Receipt Date: 20120706
  Transmission Date: 20120928
  Serious: Yes (Death, Hospitalization, Other)
  Sender: FDA-Public Use
  Company Number: US-JNJFOC-20120412570

PATIENT
  Sex: Female
  Weight: 97.52 kg

DRUGS (3)
  1. REMICADE [Suspect]
     Route: 042
     Dates: start: 20120322
  2. REMICADE [Suspect]
     Route: 042
     Dates: start: 20110101, end: 20110101
  3. REMICADE [Suspect]
     Indication: RHEUMATOID ARTHRITIS
     Route: 042
     Dates: start: 20120405, end: 20120405

REACTIONS (5)
  - ANAPHYLACTIC REACTION [None]
  - GALLBLADDER ENLARGEMENT [None]
  - DRUG EFFECT DECREASED [None]
  - DEATH [None]
  - INFUSION RELATED REACTION [None]
